FAERS Safety Report 7986059 (Version 7)
Quarter: 2013Q1

REPORT INFORMATION
  Report Type: Report from Study
  Country: FR (occurrence: FR)
  Receive Date: 20110610
  Receipt Date: 20130110
  Transmission Date: 20140127
  Serious: Yes (Hospitalization)
  Sender: FDA-Public Use
  Company Number: PHHO2011FR09721

PATIENT
  Age: 71 Year
  Sex: Male
  Weight: 79 kg

DRUGS (15)
  1. EVEROLIMUS [Suspect]
     Indication: RENAL TRANSPLANT
     Dosage: 4 MG, QD
     Route: 048
     Dates: start: 20110228, end: 20110411
  2. EVEROLIMUS [Suspect]
     Dosage: 4 MG, QD
     Route: 048
     Dates: start: 20110516, end: 20110614
  3. CELLCEPT [Concomitant]
     Indication: RENAL TRANSPLANT
     Dosage: 1 G, QD
     Route: 048
     Dates: start: 20110224
  4. CORTANCYL [Concomitant]
     Indication: RENAL TRANSPLANT
     Dosage: 5 MG, QD
     Route: 048
     Dates: start: 20110304, end: 20110926
  5. PROGRAF [Concomitant]
     Indication: RENAL TRANSPLANT
     Dosage: 2 MG, BID
     Route: 048
     Dates: start: 20110414
  6. ROVALCYTE [Concomitant]
  7. BACTRIM FORTE [Concomitant]
  8. DETENSIEL [Concomitant]
  9. XATRAL [Concomitant]
  10. ESOMEPRAZOLE [Concomitant]
  11. CALCIPARIN [Concomitant]
  12. PREVISCAN [Concomitant]
  13. ANGIOTENSIN II ANTAGONISTS [Concomitant]
  14. OFLOCET [Concomitant]
  15. TAMSULOSIN [Concomitant]

REACTIONS (6)
  - Ureteric anastomosis complication [Recovering/Resolving]
  - Lymphocele [Recovered/Resolved]
  - Hydronephrosis [Recovering/Resolving]
  - Renal failure acute [Recovering/Resolving]
  - Hyperkalaemia [Recovering/Resolving]
  - Cystogram abnormal [Not Recovered/Not Resolved]
